FAERS Safety Report 17334352 (Version 4)
Quarter: 2020Q1

REPORT INFORMATION
  Report Type: Spontaneous
  Country: BR (occurrence: BR)
  Receive Date: 20200128
  Receipt Date: 20200310
  Transmission Date: 20200409
  Serious: Yes (Life-Threatening, Other)
  Sender: FDA-Public Use
  Company Number: BR-PFIZER INC-2020034606

PATIENT
  Sex: Male

DRUGS (2)
  1. GENOTROPIN [Suspect]
     Active Substance: SOMATROPIN
     Dosage: 6 IU, UNK
  2. GENOTROPIN [Suspect]
     Active Substance: SOMATROPIN
     Dosage: 2 IU, UNK

REACTIONS (11)
  - Insomnia [Unknown]
  - Toothache [Unknown]
  - Infarction [Unknown]
  - Wrong technique in device usage process [Unknown]
  - Incorrect dose administered [Unknown]
  - Asthenia [Unknown]
  - Feeling abnormal [Unknown]
  - Dyspnoea [Unknown]
  - Somnolence [Unknown]
  - Lip swelling [Unknown]
  - Tachycardia [Unknown]
